FAERS Safety Report 21976832 (Version 2)
Quarter: 2023Q2

REPORT INFORMATION
  Report Type: Spontaneous
  Country: DE (occurrence: DE)
  Receive Date: 20230210
  Receipt Date: 20230425
  Transmission Date: 20230722
  Serious: Yes (Hospitalization, Other)
  Sender: FDA-Public Use
  Company Number: None

PATIENT
  Age: 42 Year
  Sex: Female

DRUGS (3)
  1. IVERMECTIN [Suspect]
     Active Substance: IVERMECTIN
     Indication: Off label use
     Dosage: 10 MG/ FORMULATION
     Route: 048
     Dates: start: 20221118, end: 20221118
  2. IVERMECTIN [Suspect]
     Active Substance: IVERMECTIN
     Indication: Infection prophylaxis
  3. IVERMECTIN [Suspect]
     Active Substance: IVERMECTIN
     Indication: Coronavirus infection

REACTIONS (5)
  - Psychotic behaviour [Recovering/Resolving]
  - Disturbance in attention [Recovering/Resolving]
  - Brain oedema [Recovering/Resolving]
  - Loss of consciousness [Recovering/Resolving]
  - Off label use [Unknown]

NARRATIVE: CASE EVENT DATE: 20221119
